FAERS Safety Report 5325716-4 (Version None)
Quarter: 2007Q2

REPORT INFORMATION
  Report Type: 
  Country: None (occurrence: None)
  Receive Date: 20070509
  Receipt Date: 20070501
  Transmission Date: 20071010
  Serious: Yes (Death, Hospitalization)
  Sender: FDA-Public Use
  Company Number: 232095K06USA

PATIENT
  Age: 57 Year
  Sex: Female
  Weight: 66.6788 kg

DRUGS (9)
  1. REBIF [Suspect]
     Indication: MULTIPLE SCLEROSIS
     Dosage: 44 MCG, 3 IN 1 WEEKS, SUBCUTANEOUS
     Route: 058
     Dates: start: 20040128, end: 20051030
  2. NOVANTRONE [Suspect]
     Indication: MULTIPLE SCLEROSIS
     Dosage: MG
     Dates: end: 20040101
  3. BACLOFEN [Concomitant]
  4. DURAGESIC (FENTANYL /00174601/) [Concomitant]
  5. NEURONTIN [Concomitant]
  6. ALPRAZOLAM [Concomitant]
  7. AMBIEN [Concomitant]
  8. ELAVIL [Concomitant]
  9. HYDROCODONE (HYDROCODONE) [Concomitant]

REACTIONS (3)
  - ALCOHOL POISONING [None]
  - CARDIOPULMONARY FAILURE [None]
  - DRUG SCREEN POSITIVE [None]
